FAERS Safety Report 7562650-3 (Version None)
Quarter: 2011Q2

REPORT INFORMATION
  Report Type: 
  Country: None (occurrence: None)
  Receive Date: 20110622
  Receipt Date: 20110608
  Transmission Date: 20111010
  Serious: Yes (Hospitalization)
  Sender: FDA-Public Use
  Company Number: IT-PFIZER INC-2011135131

PATIENT

DRUGS (1)
  1. SUTENT [Suspect]
     Indication: RENAL CANCER
     Dosage: 50 MG, 1X/DAY
     Route: 048
     Dates: start: 20101124, end: 20101206

REACTIONS (4)
  - ASTHENIA [None]
  - GASTROINTESTINAL TOXICITY [None]
  - THROMBOCYTOPENIA [None]
  - HYPOTHYROIDISM [None]
